FAERS Safety Report 12277452 (Version 1)
Quarter: 2016Q2

REPORT INFORMATION
  Report Type: Spontaneous
  Country: US (occurrence: US)
  Receive Date: 20160418
  Receipt Date: 20160418
  Transmission Date: 20160815
  Serious: Yes (Other)
  Sender: FDA-Public Use
  Company Number: ADR-2015-01031

PATIENT
  Age: 38 Year
  Sex: Female

DRUGS (9)
  1. ALBUTEROL. [Suspect]
     Active Substance: ALBUTEROL
  2. LIORESAL [Suspect]
     Active Substance: BACLOFEN
     Dosage: 1511MCG/DAY
     Route: 037
  3. EFFEXOR [Suspect]
     Active Substance: VENLAFAXINE HYDROCHLORIDE
  4. LIORESAL [Suspect]
     Active Substance: BACLOFEN
     Dosage: 1400MCG/DAY
     Route: 037
  5. TERBUTALINE [Suspect]
     Active Substance: TERBUTALINE
  6. KEPPRA [Suspect]
     Active Substance: LEVETIRACETAM
  7. SINGULAIR [Suspect]
     Active Substance: MONTELUKAST SODIUM
  8. DITROPAN [Suspect]
     Active Substance: OXYBUTYNIN CHLORIDE
  9. COLACE [Suspect]
     Active Substance: DOCUSATE SODIUM

REACTIONS (8)
  - Medical device site swelling [Recovered/Resolved]
  - Impaired healing [Recovered/Resolved]
  - Medical device site erythema [Recovered/Resolved]
  - Pocket erosion [Recovered/Resolved]
  - Medical device site pain [Recovered/Resolved]
  - Wound dehiscence [Recovered/Resolved]
  - Staphylococcus test positive [Recovered/Resolved]
  - Escherichia test positive [Recovered/Resolved]
